FAERS Safety Report 11929634 (Version 1)
Quarter: 2016Q1

REPORT INFORMATION
  Report Type: Spontaneous
  Country: US (occurrence: None)
  Receive Date: 20160119
  Receipt Date: 20160119
  Transmission Date: 20160526
  Serious: Yes (Other)
  Sender: FDA-Public Use
  Company Number: None

PATIENT
  Age: 66 Year
  Sex: Male
  Weight: 96.16 kg

DRUGS (5)
  1. METROPOLOL [Concomitant]
     Active Substance: METOPROLOL
  2. SIMVASTATIN. [Concomitant]
     Active Substance: SIMVASTATIN
  3. ASPIRIN. [Concomitant]
     Active Substance: ASPIRIN
  4. COLGATE OPTIC WHITE - SPARKLING MINT [Suspect]
     Active Substance: SODIUM MONOFLUOROPHOSPHATE
     Indication: DENTAL CARE
     Dosage: TOOTH PASTE ?TWICE DAILY
     Dates: start: 20151001, end: 20151210
  5. REGULAR VITAMIN [Concomitant]

REACTIONS (4)
  - Vomiting [None]
  - Tooth disorder [None]
  - Rhinorrhoea [None]
  - Productive cough [None]

NARRATIVE: CASE EVENT DATE: 20151001
